FAERS Safety Report 18488365 (Version 1)
Quarter: 2020Q4

REPORT INFORMATION
  Report Type: Spontaneous
  Country: CN (occurrence: CN)
  Receive Date: 20201110
  Receipt Date: 20201110
  Transmission Date: 20210114
  Serious: Yes (Other)
  Sender: FDA-Public Use
  Company Number: CN-BAXTER-2020BAX022518

PATIENT
  Age: 66 Year
  Sex: Male
  Weight: 66 kg

DRUGS (5)
  1. 5% GLUCOSE  INJECTION [Suspect]
     Active Substance: DEXTROSE
     Indication: MEDICATION DILUTION
     Dosage: 5% GS
     Route: 041
     Dates: start: 20200922, end: 20200922
  2. 5% GLUCOSE  INJECTION [Suspect]
     Active Substance: DEXTROSE
     Dosage: DOSE RE-INTRODUCED
     Route: 041
     Dates: start: 202010
  3. XELODA [Suspect]
     Active Substance: CAPECITABINE
     Dosage: CAPECITABINE TABLET, AFTER DINNER
     Route: 048
     Dates: start: 20200922, end: 20201006
  4. XELODA [Suspect]
     Active Substance: CAPECITABINE
     Dosage: DOSE RE-INTRODUCED
     Route: 048
     Dates: start: 202010
  5. XELODA [Suspect]
     Active Substance: CAPECITABINE
     Indication: COLON CANCER
     Dosage: CAPECITABINE TABLET, AFTER BREAKFAST
     Route: 048
     Dates: start: 20200922, end: 20201006

REACTIONS (2)
  - Leukopenia [Recovered/Resolved]
  - Neutropenia [Recovered/Resolved]

NARRATIVE: CASE EVENT DATE: 20201005
